FAERS Safety Report 8847832 (Version 2)
Quarter: 2014Q2

REPORT INFORMATION
  Report Type: Spontaneous
  Country: US (occurrence: US)
  Receive Date: 20121018
  Receipt Date: 20140430
  Transmission Date: 20141212
  Serious: Yes (Other)
  Sender: FDA-Public Use
  Company Number: US-ASTRAZENECA-2012SE77590

PATIENT
  Age: 47 Year
  Sex: Male
  Weight: 111.1 kg

DRUGS (13)
  1. NEXIUM [Suspect]
     Indication: GASTROOESOPHAGEAL REFLUX DISEASE
     Route: 048
     Dates: start: 201201, end: 201403
  2. LISINOPRIL HCTZ [Suspect]
     Indication: HYPERTENSION
     Dosage: 20-25 MG DAILY
     Route: 048
     Dates: start: 2012
  3. METOPROLOL [Suspect]
     Indication: HYPERTENSION
     Dosage: UNKNOWN DAILY
     Route: 048
     Dates: start: 2012
  4. METOPROLOL SUCCINATE [Suspect]
     Indication: HYPERTENSION
     Route: 048
     Dates: start: 2012
  5. OMEPRAZOLE [Suspect]
     Indication: GASTROOESOPHAGEAL REFLUX DISEASE
     Route: 048
  6. OMEPRAZOLE [Suspect]
     Indication: GASTROOESOPHAGEAL REFLUX DISEASE
     Dosage: 20 MG, 1 CAPSULE DAILY EVERY MORNING BEFORE BREAKFAST
     Route: 048
  7. ZOLOFT [Concomitant]
     Indication: DEPRESSION
     Route: 048
     Dates: start: 2013
  8. AMBIEN [Concomitant]
     Indication: SLEEP DISORDER
     Route: 048
     Dates: start: 2013
  9. HYDROCODONE APAT [Concomitant]
     Indication: PAIN
     Dosage: 7.5-3.5 MG, 1 TABLET BID
     Route: 048
     Dates: start: 201306
  10. LATUDA [Concomitant]
     Indication: ANTIPSYCHOTIC DRUG LEVEL
     Route: 048
     Dates: start: 2014
  11. ED A-HIST [Concomitant]
     Dosage: 4-10 MG, 1 TABLET EVERY 4 TO 6 HOURS AS DIRECTED
     Route: 048
  12. TOBRAMYCIN-DEXAMETHASONE [Concomitant]
     Dosage: 0.3-0.1%, INSTILL 1-2 DROPS INTO AFFECTED EYE(S) 4 TIMES DAILY AS DIRECTED
     Route: 047
  13. CEPHALEXIN [Concomitant]
     Dosage: 1 BID FOR 7-10 DAYS
     Route: 048

REACTIONS (29)
  - Choking [Unknown]
  - Screaming [Unknown]
  - Hypophagia [Unknown]
  - Weight decreased [Unknown]
  - Sleep disorder due to a general medical condition [Unknown]
  - Pain [Unknown]
  - Ear pain [Unknown]
  - Back pain [Unknown]
  - Nasopharyngitis [Unknown]
  - Skin lesion [Unknown]
  - Nasal congestion [Unknown]
  - Cough [Unknown]
  - Lumbar radiculopathy [Unknown]
  - Keloid scar [Unknown]
  - Influenza [Unknown]
  - Sexually transmitted disease [Unknown]
  - Pain [Unknown]
  - Bronchitis [Unknown]
  - Acute sinusitis [Unknown]
  - Musculoskeletal pain [Unknown]
  - Muscle spasms [Unknown]
  - Hypertension [Unknown]
  - Retching [Unknown]
  - Depression [Unknown]
  - Initial insomnia [Unknown]
  - Vomiting [Unknown]
  - Headache [Unknown]
  - Drug dose omission [Unknown]
  - Drug ineffective [Unknown]
